FAERS Safety Report 19073768 (Version 1)
Quarter: 2021Q1

REPORT INFORMATION
  Report Type: Spontaneous
  Country: CN (occurrence: CN)
  Receive Date: 20210330
  Receipt Date: 20210330
  Transmission Date: 20210420
  Serious: Yes (Other)
  Sender: FDA-Public Use
  Company Number: CN-ASTRAZENECA-2021A188308

PATIENT
  Age: 49 Year
  Sex: Male

DRUGS (3)
  1. PEMETREXED. [Concomitant]
     Active Substance: PEMETREXED
     Indication: CHEMOTHERAPY
     Dosage: 0.8 G DISSOLVED IN 0.9% SODIUM CHLORIDE INJECTION 100ML INTRAVENOUS DRIP, ON THE FIRST DAY, 21 DA...
     Route: 041
     Dates: start: 20190818, end: 20191005
  2. CISPLATIN. [Concomitant]
     Active Substance: CISPLATIN
     Indication: CHEMOTHERAPY
     Dosage: 30 MG DISSOLVED IN 0.9% SODIUM CHLORIDE INJECTION 250 ML INTRAVENOUS DRIP, 1ST TO 4TH DAY, 21 DAY...
     Route: 041
     Dates: start: 20190818, end: 20191005
  3. GEFITINIB. [Suspect]
     Active Substance: GEFITINIB
     Indication: LUNG ADENOCARCINOMA STAGE IV
     Route: 048
     Dates: start: 2019

REACTIONS (1)
  - Retinal haemorrhage [Not Recovered/Not Resolved]

NARRATIVE: CASE EVENT DATE: 20191015
